FAERS Safety Report 20695385 (Version 1)
Quarter: 2022Q2

REPORT INFORMATION
  Report Type: Spontaneous
  Country: US (occurrence: US)
  Receive Date: 20220411
  Receipt Date: 20220411
  Transmission Date: 20220721
  Serious: No
  Sender: FDA-Public Use
  Company Number: US-SA-SAC20220407000468

PATIENT
  Sex: Male

DRUGS (1)
  1. DUPIXENT [Suspect]
     Active Substance: DUPILUMAB
     Indication: Eczema
     Dosage: 300 MG, QOW
     Route: 058
     Dates: start: 202003

REACTIONS (6)
  - Pruritus [Unknown]
  - Ocular hyperaemia [Unknown]
  - Skin exfoliation [Unknown]
  - Dry skin [Unknown]
  - Hypersensitivity [Unknown]
  - Rash [Unknown]
